FAERS Safety Report 10192272 (Version 1)
Quarter: 2014Q2

REPORT INFORMATION
  Report Type: Spontaneous
  Country: US (occurrence: US)
  Receive Date: 20140523
  Receipt Date: 20140523
  Transmission Date: 20141212
  Serious: Yes (Hospitalization, Other)
  Sender: FDA-Public Use
  Company Number: US-ASTRAZENECA-2014SE34238

PATIENT
  Age: 53 Year
  Sex: Female
  Weight: 83.9 kg

DRUGS (19)
  1. LISINOPRIL [Suspect]
     Indication: PROPHYLAXIS
     Route: 048
  2. LISINOPRIL [Suspect]
     Indication: PROPHYLAXIS
     Route: 048
  3. LISINOPRIL [Suspect]
     Indication: PROPHYLAXIS
     Route: 048
     Dates: start: 201310
  4. LISINOPRIL [Suspect]
     Indication: PROPHYLAXIS
     Route: 048
     Dates: start: 201310
  5. BRILINTA [Suspect]
     Indication: MYOCARDIAL INFARCTION
     Route: 048
     Dates: start: 201405
  6. PENICILLIN [Suspect]
     Route: 065
  7. ZOFRAN [Suspect]
     Route: 048
  8. LANTUS [Concomitant]
     Indication: DIABETES MELLITUS
     Dosage: 38 UNITS DAILY
     Route: 058
  9. LANTUS [Concomitant]
     Indication: DIABETES MELLITUS
     Dosage: 28 UNITS HS
     Route: 058
  10. NOVOLOG [Concomitant]
     Indication: DIABETES MELLITUS
  11. SYNTHROID [Concomitant]
  12. HYDROCODONE [Concomitant]
     Indication: PAIN
  13. SOMA [Concomitant]
     Indication: PAIN
  14. CARVEDILOL [Concomitant]
  15. ATIVAN [Concomitant]
     Dosage: EVERY 6 HOURS
  16. ASPIRIN [Concomitant]
  17. GABAPENTIN [Concomitant]
  18. EFFIENT [Concomitant]
  19. PLAVIX [Concomitant]

REACTIONS (12)
  - Aortic disorder [Recovered/Resolved]
  - Angiopathy [Unknown]
  - Necrotising fasciitis [Unknown]
  - Gallbladder disorder [Recovered/Resolved]
  - Myocardial infarction [Unknown]
  - Thrombosis [Unknown]
  - Dyspnoea [Recovered/Resolved]
  - Post-traumatic stress disorder [Unknown]
  - Drug hypersensitivity [Unknown]
  - Diabetes mellitus [Not Recovered/Not Resolved]
  - Drug hypersensitivity [Unknown]
  - Intentional product misuse [Unknown]
